FAERS Safety Report 6805761-X (Version None)
Quarter: 2010Q2

REPORT INFORMATION
  Report Type: 
  Country: None (occurrence: None)
  Receive Date: 20100628
  Receipt Date: 20100614
  Transmission Date: 20101027
  Serious: Yes (Other)
  Sender: FDA-Public Use
  Company Number: IT-MYLANLABS-2010S1010496

PATIENT
  Age: 25 Year
  Sex: Male

DRUGS (3)
  1. AMISULPRIDE [Interacting]
     Indication: PSYCHIATRIC SYMPTOM
     Dosage: 200MG DAILY
     Route: 065
  2. METFORMIN HCL [Suspect]
     Indication: HYPERINSULINAEMIA
     Dosage: 500MG THREE TIMES A DAY
     Route: 065
     Dates: start: 20080601
  3. METFORMIN HCL [Interacting]
     Indication: WEIGHT DECREASED
     Dosage: 500MG THREE TIMES A DAY
     Route: 065
     Dates: start: 20080601

REACTIONS (2)
  - DRUG INTERACTION [None]
  - RHABDOMYOLYSIS [None]
